FAERS Safety Report 5239563-5 (Version None)
Quarter: 2007Q1

REPORT INFORMATION
  Report Type: 
  Country: None (occurrence: None)
  Receive Date: 20070216
  Receipt Date: 20070209
  Transmission Date: 20070707
  Serious: Yes (Other)
  Sender: FDA-Public Use
  Company Number: GB-GLAXOSMITHKLINE-B0458449A

PATIENT
  Sex: Male

DRUGS (1)
  1. NIQUITIN CQ CLEAR 21MG [Suspect]
     Dosage: 21MG PER DAY
     Route: 062

REACTIONS (3)
  - AGGRESSION [None]
  - FLATULENCE [None]
  - NICOTINE DEPENDENCE [None]
